FAERS Safety Report 16198207 (Version 1)
Quarter: 2019Q2

REPORT INFORMATION
  Report Type: Spontaneous
  Country: FI (occurrence: FI)
  Receive Date: 20190415
  Receipt Date: 20190415
  Transmission Date: 20190711
  Serious: Yes (Hospitalization)
  Sender: FDA-Public Use
  Company Number: FI-BAYER-2019-076108

PATIENT
  Age: 35 Year
  Sex: Female

DRUGS (1)
  1. KYLEENA [Suspect]
     Active Substance: LEVONORGESTREL
     Indication: CONTRACEPTION
     Dosage: 17.5 MCG/24HR, CONT
     Route: 015

REACTIONS (2)
  - Salpingectomy [Recovered/Resolved with Sequelae]
  - Ectopic pregnancy with contraceptive device [Recovered/Resolved with Sequelae]

NARRATIVE: CASE EVENT DATE: 20190326
